FAERS Safety Report 14223773 (Version 2)
Quarter: 2017Q4

REPORT INFORMATION
  Report Type: Spontaneous
  Country: CH (occurrence: CH)
  Receive Date: 20171125
  Receipt Date: 20171128
  Transmission Date: 20180321
  Serious: Yes (Death, Other)
  Sender: FDA-Public Use
  Company Number: CH-UCBSA-2017047083

PATIENT
  Age: 49 Year
  Sex: Female
  Weight: 100 kg

DRUGS (16)
  1. KEPPRA [Suspect]
     Active Substance: LEVETIRACETAM
     Dosage: 1500 MG, 2X/DAY (BID)
     Route: 048
     Dates: start: 20170929, end: 20171028
  2. ORFIRIL [Suspect]
     Active Substance: VALPROATE SODIUM
     Indication: EPILEPSY
     Dosage: 3 X 300MG PER DAY
     Dates: start: 2016
  3. ASPIRIN. [Concomitant]
     Active Substance: ASPIRIN
     Indication: PRODUCT USED FOR UNKNOWN INDICATION
     Dates: start: 20171006
  4. VIMPAT [Suspect]
     Active Substance: LACOSAMIDE
     Indication: EPILEPSY
     Dosage: 50 MG, 2X/DAY (BID)
     Route: 048
     Dates: start: 20171017, end: 20171023
  5. HALDOL [Concomitant]
     Active Substance: HALOPERIDOL
     Indication: PSYCHOTIC DISORDER
     Dates: start: 20171028, end: 20171028
  6. ORFIRIL [Suspect]
     Active Substance: VALPROATE SODIUM
     Dosage: 300 MG, 2X/DAY (BID)
     Route: 048
     Dates: start: 20170927, end: 20171023
  7. LAMICTAL [Suspect]
     Active Substance: LAMOTRIGINE
     Dosage: 375 MG DAILY (200MG-0-175MG)
     Route: 048
     Dates: start: 20170927, end: 20171028
  8. TEMESTA (LORAZEPAM) [Concomitant]
     Active Substance: LORAZEPAM
     Indication: PSYCHOTIC DISORDER
     Dates: start: 20171028, end: 20171028
  9. KEPPRA [Suspect]
     Active Substance: LEVETIRACETAM
     Indication: EPILEPSY
     Dosage: 1500 MG, 2X/DAY (BID)
     Route: 048
     Dates: start: 2016
  10. ORFIRIL [Suspect]
     Active Substance: VALPROATE SODIUM
     Dosage: 300 MG 0.5-0-1
     Route: 048
     Dates: start: 20171024, end: 20171028
  11. FRAGMIN [Concomitant]
     Active Substance: DALTEPARIN SODIUM
     Indication: THROMBOSIS PROPHYLAXIS
     Dates: start: 20171005, end: 20171028
  12. PONSTAN [Concomitant]
     Active Substance: MEFENAMIC ACID
     Indication: PRODUCT USED FOR UNKNOWN INDICATION
  13. PARACETAMOL [Concomitant]
     Active Substance: ACETAMINOPHEN
     Indication: PRODUCT USED FOR UNKNOWN INDICATION
     Dates: start: 20171015
  14. VIMPAT [Suspect]
     Active Substance: LACOSAMIDE
     Dosage: 100 MG, 2X/DAY (BID)
     Route: 048
     Dates: start: 20171024, end: 20171028
  15. LAMICTAL [Suspect]
     Active Substance: LAMOTRIGINE
     Indication: EPILEPSY
     Dosage: 200 MG, 2X/DAY (BID) (200MG-0-200MG PER DAY)
     Route: 048
     Dates: start: 2016
  16. CALCIMAGON D3 [Concomitant]
     Active Substance: CALCIUM\CHOLECALCIFEROL
     Indication: PRODUCT USED FOR UNKNOWN INDICATION
     Dates: start: 20171005, end: 20171028

REACTIONS (4)
  - Agitation [Unknown]
  - Psychotic symptom [Unknown]
  - Completed suicide [Fatal]
  - Tremor [Unknown]

NARRATIVE: CASE EVENT DATE: 20171017
